FAERS Safety Report 22260891 (Version 1)
Quarter: 2023Q2

REPORT INFORMATION
  Report Type: Spontaneous
  Country: US (occurrence: US)
  Receive Date: 20230427
  Receipt Date: 20230427
  Transmission Date: 20230721
  Serious: No
  Sender: FDA-Public Use
  Company Number: US-009507513-2304USA008520

PATIENT
  Age: 66 Year
  Sex: Female

DRUGS (5)
  1. KEYTRUDA [Suspect]
     Active Substance: PEMBROLIZUMAB
     Indication: Gestational trophoblastic tumour
  2. ETOPOSIDE [Concomitant]
     Active Substance: ETOPOSIDE
     Indication: Gestational trophoblastic tumour
  3. CISPLATIN [Concomitant]
     Active Substance: CISPLATIN
     Indication: Gestational trophoblastic tumour
  4. METHOTREXATE [Concomitant]
     Active Substance: METHOTREXATE
     Indication: Gestational trophoblastic tumour
  5. ACTINOMYCIN D [Concomitant]
     Active Substance: DACTINOMYCIN
     Indication: Gestational trophoblastic tumour

REACTIONS (1)
  - Off label use [Unknown]
